FAERS Safety Report 5613583-0 (Version None)
Quarter: 2008Q1

REPORT INFORMATION
  Report Type: 
  Country: None (occurrence: None)
  Receive Date: 20080205
  Receipt Date: 20080131
  Transmission Date: 20080703
  Serious: Yes (Hospitalization)
  Sender: FDA-Public Use
  Company Number: PHEH2007US16125

PATIENT
  Age: 72 Year
  Sex: Female
  Weight: 74.829 kg

DRUGS (11)
  1. TEKTURNA [Suspect]
     Indication: HYPERTENSION
     Dosage: 150 MG, UNK
     Route: 048
     Dates: start: 20070913, end: 20071011
  2. TEKTURNA [Suspect]
     Dosage: 300 MG, UNK
     Dates: start: 20071012, end: 20071210
  3. TEKTURNA [Suspect]
     Dosage: 150 MG, UNK
  4. CATAPRES /USA/ [Suspect]
     Indication: HYPERTENSION
     Dosage: 0.02 MG, UNK
     Route: 062
     Dates: start: 20071224, end: 20080103
  5. CATAPRES /USA/ [Suspect]
     Dosage: 0.02 MG, BID
     Route: 048
     Dates: start: 20071210, end: 20071224
  6. CATAPRES /USA/ [Suspect]
     Dosage: 0.03 MG, UNK
     Route: 062
     Dates: start: 20080103
  7. BENAZEPRIL HYDROCHLORIDE [Suspect]
     Indication: HYPERTENSION
  8. COREG [Suspect]
     Indication: HYPERTENSION
     Dosage: 25 MG, BID
  9. LASIX [Suspect]
     Indication: HYPERTENSION
     Dosage: UNK, QD
  10. ATACAND [Suspect]
     Dosage: 16 MG, UNK
  11. ATACAND [Suspect]
     Dosage: 32 MG, UNK
     Dates: start: 20071224

REACTIONS (5)
  - BLOOD PRESSURE FLUCTUATION [None]
  - BLOOD PRESSURE INCREASED [None]
  - HEADACHE [None]
  - MALAISE [None]
  - SOMNOLENCE [None]
